FAERS Safety Report 12192155 (Version 2)
Quarter: 2016Q2

REPORT INFORMATION
  Report Type: Spontaneous
  Country: US (occurrence: US)
  Receive Date: 20160318
  Receipt Date: 20160405
  Transmission Date: 20160815
  Serious: No
  Sender: FDA-Public Use
  Company Number: US-PFIZER INC-2016115653

PATIENT
  Age: 56 Year
  Sex: Male
  Weight: 131.54 kg

DRUGS (1)
  1. VIAGRA [Suspect]
     Active Substance: SILDENAFIL CITRATE
     Indication: SEXUAL DYSFUNCTION
     Dosage: 100 MG, TABLET, ONE TIME
     Route: 048
     Dates: start: 20160223

REACTIONS (1)
  - Drug ineffective [Unknown]
